FAERS Safety Report 16876739 (Version 1)
Quarter: 2019Q4

REPORT INFORMATION
  Report Type: Spontaneous
  Country: US (occurrence: US)
  Receive Date: 20191002
  Receipt Date: 20191002
  Transmission Date: 20200122
  Serious: Yes (Life-Threatening, Hospitalization)
  Sender: FDA-Public Use
  Company Number: None

PATIENT
  Age: 76 Year
  Sex: Male
  Weight: 88.7 kg

DRUGS (2)
  1. RITUXIMAB. [Suspect]
     Active Substance: RITUXIMAB
     Indication: HAIRY CELL LEUKAEMIA
     Route: 042
     Dates: start: 20190418
  2. PENTOSTATIN. [Concomitant]
     Active Substance: PENTOSTATIN

REACTIONS (18)
  - Urticaria [None]
  - Throat irritation [None]
  - Anaphylactic reaction [None]
  - Rash pruritic [None]
  - Lip swelling [None]
  - Eyelid oedema [None]
  - Abdominal pain [None]
  - Dyspnoea [None]
  - Pain in extremity [None]
  - Hypotension [None]
  - Anaphylactic shock [None]
  - Anxiety [None]
  - Sensation of foreign body [None]
  - Rash [None]
  - Infusion related reaction [None]
  - Pruritus [None]
  - Swollen tongue [None]
  - Oxygen saturation decreased [None]

NARRATIVE: CASE EVENT DATE: 20190418
